APPROVED DRUG PRODUCT: TESTOSTERONE ENANTHATE AND ESTRADIOL VALERATE
Active Ingredient: ESTRADIOL VALERATE; TESTOSTERONE ENANTHATE
Strength: 8MG/ML;180MG/ML
Dosage Form/Route: INJECTABLE;INJECTION
Application: A085860 | Product #001
Applicant: WATSON LABORATORIES INC
Approved: Approved Prior to Jan 1, 1982 | RLD: No | RS: No | Type: DISCN